FAERS Safety Report 25593470 (Version 2)
Quarter: 2025Q3

REPORT INFORMATION
  Report Type: Spontaneous
  Country: GB (occurrence: GB)
  Receive Date: 20250722
  Receipt Date: 20250801
  Transmission Date: 20251021
  Serious: Yes (Other)
  Sender: ESPERION THERAPEUTICS
  Company Number: None

PATIENT
  Age: 61 Year
  Sex: Female
  Weight: 114 kg

DRUGS (10)
  1. BEMPEDOIC ACID\EZETIMIBE [Suspect]
     Active Substance: BEMPEDOIC ACID\EZETIMIBE
     Indication: Blood cholesterol increased
     Dosage: 10 MG, QD
     Route: 065
     Dates: start: 20250601, end: 20250705
  2. BISOPROLOL [Concomitant]
     Active Substance: BISOPROLOL
     Indication: Hypertension
     Route: 065
  3. CANDESARTAN [Concomitant]
     Active Substance: CANDESARTAN
     Indication: Blood pressure increased
     Route: 065
  4. AMIODARONE [Concomitant]
     Active Substance: AMIODARONE
     Indication: Hypertension
     Route: 065
  5. LEVOTHYROXINE [Concomitant]
     Active Substance: LEVOTHYROXINE
     Indication: Product used for unknown indication
     Route: 065
  6. OZEMPIC [Concomitant]
     Active Substance: SEMAGLUTIDE
     Indication: Diabetes mellitus
     Route: 065
     Dates: start: 2023
  7. LANSOPRAZOLE [Concomitant]
     Active Substance: LANSOPRAZOLE
     Indication: Product used for unknown indication
     Route: 065
  8. LACTULOSE [Concomitant]
     Active Substance: LACTULOSE
     Indication: Gastric bypass
     Route: 065
  9. CALCIUM CARBONATE [Concomitant]
     Active Substance: CALCIUM CARBONATE
     Indication: Gastric bypass
     Route: 065
  10. BEECHAM^S [Concomitant]
     Indication: Gastric bypass
     Route: 065

REACTIONS (19)
  - Renal pain [Recovering/Resolving]
  - Illness [Recovering/Resolving]
  - Fall [Not Recovered/Not Resolved]
  - Nephrolithiasis [Unknown]
  - Biliary colic [Unknown]
  - Blood pressure measurement [Not Recovered/Not Resolved]
  - Blood pressure measurement [Not Recovered/Not Resolved]
  - Myalgia [Recovering/Resolving]
  - Muscular weakness [Unknown]
  - Rash [Not Recovered/Not Resolved]
  - Oral discomfort [Not Recovered/Not Resolved]
  - Muscle spasms [Not Recovered/Not Resolved]
  - Cholelithiasis [Recovering/Resolving]
  - Arthralgia [Not Recovered/Not Resolved]
  - Fatigue [Not Recovered/Not Resolved]
  - Dizziness [Not Recovered/Not Resolved]
  - Headache [Recovering/Resolving]
  - Neck pain [Unknown]
  - Pruritus [Unknown]

NARRATIVE: CASE EVENT DATE: 20250602
